FAERS Safety Report 20135811 (Version 1)
Quarter: 2021Q4

REPORT INFORMATION
  Report Type: Spontaneous
  Country: US (occurrence: None)
  Receive Date: 20211130
  Receipt Date: 20211130
  Transmission Date: 20220303
  Serious: No
  Sender: FDA-Public Use
  Company Number: None

PATIENT
  Sex: Female

DRUGS (1)
  1. NORETHINDRONE ACETATE AND ETHINYL ESTRADIOL [Suspect]
     Active Substance: ETHINYL ESTRADIOL\NORETHINDRONE ACETATE

REACTIONS (7)
  - Product prescribing error [None]
  - Wrong product administered [None]
  - Heavy menstrual bleeding [None]
  - Product communication issue [None]
  - Product label confusion [None]
  - Transcription medication error [None]
  - Product communication issue [None]
